FAERS Safety Report 17541533 (Version 3)
Quarter: 2020Q1

REPORT INFORMATION
  Report Type: Report from Study
  Country: CO (occurrence: CO)
  Receive Date: 20200313
  Receipt Date: 20200331
  Transmission Date: 20200409
  Serious: Yes (Hospitalization)
  Sender: FDA-Public Use
  Company Number: CO-BAYER-2020-038546

PATIENT
  Age: 56 Year
  Sex: Female

DRUGS (7)
  1. BOSENTAN. [Concomitant]
     Active Substance: BOSENTAN
     Indication: PULMONARY HYPERTENSION
     Dosage: UNK
  2. FLUOXETINE [Concomitant]
     Active Substance: FLUOXETINE HYDROCHLORIDE
     Indication: ANXIETY
     Dosage: UNK
  3. ADEMPAS [Suspect]
     Active Substance: RIOCIGUAT
     Indication: PULMONARY ARTERIAL HYPERTENSION
     Dosage: 1 MG, Q8HR
     Route: 048
     Dates: start: 20200201
  4. CYCLOPHOSPHAMIDE. [Concomitant]
     Active Substance: CYCLOPHOSPHAMIDE
     Dosage: UNK
  5. ADEMPAS [Suspect]
     Active Substance: RIOCIGUAT
     Indication: PULMONARY ARTERIAL HYPERTENSION
     Dosage: 1 MG, BID
  6. BOSENTAN. [Concomitant]
     Active Substance: BOSENTAN
     Indication: PULMONARY HYPERTENSION
  7. BOSENTAN. [Concomitant]
     Active Substance: BOSENTAN
     Indication: PULMONARY HYPERTENSION

REACTIONS (8)
  - General physical health deterioration [None]
  - Product availability issue [None]
  - Intentional product use issue [None]
  - Inappropriate schedule of product administration [None]
  - Nausea [Not Recovered/Not Resolved]
  - Product prescribing issue [None]
  - Malaise [Not Recovered/Not Resolved]
  - Pyrexia [Not Recovered/Not Resolved]

NARRATIVE: CASE EVENT DATE: 20200304
